FAERS Safety Report 13988205 (Version 2)
Quarter: 2019Q4

REPORT INFORMATION
  Report Type: Spontaneous
  Country: DE (occurrence: DE)
  Receive Date: 20170919
  Receipt Date: 20191216
  Transmission Date: 20200122
  Serious: Yes (Congenital Anomaly)
  Sender: FDA-Public Use
  Company Number: DE-TEVA-805803GER

PATIENT
  Age: 1 Day
  Sex: Male
  Weight: 3.44 kg

DRUGS (4)
  1. FOLSAEURE [Concomitant]
     Active Substance: FOLIC ACID
     Indication: PROPHYLAXIS OF NEURAL TUBE DEFECT
     Dosage: 0.8 (MG/D)
     Route: 064
  2. MAXALT 10 MG [Concomitant]
     Indication: MIGRAINE
     Dosage: 10 MILLIGRAM DAILY; 10 (MG/D )/ IF REQUIRED, OCCASIONALLY
     Route: 064
  3. SERTRALINE [Suspect]
     Active Substance: SERTRALINE HYDROCHLORIDE
     Indication: DEPRESSION
     Dosage: 200 (MG/D)/ INITAL 200 MG/D, DOSAGE REDUCTION TO 150, LATER TO 100 MG/D
     Route: 064
     Dates: start: 20151228, end: 20160929
  4. PARACETAMOL/ CAFFEINE [Concomitant]
     Active Substance: ACETAMINOPHEN\CAFFEINE
     Indication: MIGRAINE
     Dosage: 50 (MG/D) / 1000 (MG/D)/ IF REQUIRED, OCCASIONALLY
     Route: 064

REACTIONS (2)
  - Foetal exposure during pregnancy [Unknown]
  - Hypospadias [Not Recovered/Not Resolved]

NARRATIVE: CASE EVENT DATE: 20160929
